FAERS Safety Report 10256360 (Version 4)
Quarter: 2014Q4

REPORT INFORMATION
  Report Type: Spontaneous
  Country: DE (occurrence: GB)
  Receive Date: 20140624
  Receipt Date: 20141006
  Transmission Date: 20150528
  Serious: Yes (Hospitalization)
  Sender: FDA-Public Use
  Company Number: GB-FRI-1000068446

PATIENT
  Age: 89 Year
  Sex: Female

DRUGS (25)
  1. ANTIBIOTICS [Concomitant]
     Active Substance: UNSPECIFIED INGREDIENT
     Indication: VASCULITIS
  2. ATORVASTATIN [Concomitant]
     Active Substance: ATORVASTATIN
     Dosage: 40 MG
     Route: 048
  3. CAVILON DURABLE BARRIER CREAM [Concomitant]
     Route: 061
  4. BISOPROLOL [Concomitant]
     Active Substance: BISOPROLOL
     Dosage: 1.25 MG
     Route: 048
  5. FUROSEMIDE. [Concomitant]
     Active Substance: FUROSEMIDE
     Dosage: 40 MG
     Route: 048
  6. LACRI-LUBE EYE OINTMENT [Concomitant]
  7. ANASTROZOLE. [Concomitant]
     Active Substance: ANASTROZOLE
     Dosage: 1 MG
     Route: 048
  8. MEBEVERINE [Concomitant]
     Active Substance: MEBEVERINE
     Dosage: 300 MG
     Route: 048
  9. EICOSAPENTAENOIC ACID [Concomitant]
     Dosage: 1 DF
     Route: 048
  10. VITAMINS NOS [Concomitant]
     Active Substance: VITAMINS
     Dosage: 2 DF
     Route: 048
  11. FERROUS FUMARATE [Concomitant]
     Active Substance: FERROUS FUMARATE
     Dosage: 420 MG
     Route: 048
  12. OXYBUTYNIN [Concomitant]
     Active Substance: OXYBUTYNIN
     Dosage: 15 MG
     Route: 048
  13. WARFARIN [Concomitant]
     Active Substance: WARFARIN
     Route: 048
  14. MEMANTINE ORAL SOLUTION [Suspect]
     Active Substance: MEMANTINE
     Indication: DEMENTIA ALZHEIMER^S TYPE
     Dosage: 20 MG
     Route: 048
     Dates: end: 201406
  15. ALFACALCIDOL [Concomitant]
     Active Substance: ALFACALCIDOL
     Dosage: 250 NG
  16. SULFASALAZINE. [Concomitant]
     Active Substance: SULFASALAZINE
     Dosage: 1000 MG
     Route: 048
  17. SYSTANE ULTRA EYE DROPS [Concomitant]
     Dosage: APPLIED 4-6 TIMES DAILY
  18. MEMANTINE ORAL SOLUTION [Suspect]
     Active Substance: MEMANTINE
     Dosage: 80 MG
     Dates: start: 201406, end: 201406
  19. ANTIBIOTICS [Concomitant]
     Active Substance: UNSPECIFIED INGREDIENT
     Indication: URINARY TRACT INFECTION
     Dates: start: 201406
  20. LANSOPRAZOLE. [Concomitant]
     Active Substance: LANSOPRAZOLE
     Dosage: 30 MG
     Route: 048
  21. MIRTAZAPINE. [Concomitant]
     Active Substance: MIRTAZAPINE
     Dosage: 30 MG
     Route: 048
  22. NICORANDIL [Concomitant]
     Active Substance: NICORANDIL
     Dosage: 20 MG
     Route: 048
  23. CALCIUM AND ERGOCALCIFEROL [Concomitant]
     Dosage: 1 DF
     Route: 048
  24. OLANZAPINE. [Concomitant]
     Active Substance: OLANZAPINE
     Dosage: 2.5 MG
     Route: 048
  25. METOCLOPRAMIDE. [Concomitant]
     Active Substance: METOCLOPRAMIDE
     Dosage: 30 MG
     Route: 048

REACTIONS (10)
  - Palpitations [Unknown]
  - Aggression [Unknown]
  - Accidental overdose [Unknown]
  - Confusional state [Not Recovered/Not Resolved]
  - Drug withdrawal syndrome [Not Recovered/Not Resolved]
  - Wrong technique in drug usage process [Unknown]
  - Off label use [Recovered/Resolved]
  - Paranoia [Unknown]
  - Somnolence [Unknown]
  - Hallucination [Unknown]

NARRATIVE: CASE EVENT DATE: 201406
